FAERS Safety Report 14926871 (Version 1)
Quarter: 2018Q2

REPORT INFORMATION
  Report Type: Spontaneous
  Country: BR (occurrence: BR)
  Receive Date: 20180523
  Receipt Date: 20180523
  Transmission Date: 20180711
  Serious: No
  Sender: FDA-Public Use
  Company Number: BR-009507513-1805BRA008243

PATIENT
  Sex: Male

DRUGS (1)
  1. NASONEX [Suspect]
     Active Substance: MOMETASONE FUROATE
     Dosage: UNK
     Route: 055
     Dates: start: 201802

REACTIONS (2)
  - Product label confusion [Unknown]
  - Product use issue [Unknown]

NARRATIVE: CASE EVENT DATE: 2018
